FAERS Safety Report 6456718-2 (Version None)
Quarter: 2009Q4

REPORT INFORMATION
  Report Type: 
  Country: None (occurrence: None)
  Receive Date: 20091125
  Receipt Date: 20091118
  Transmission Date: 20100525
  Serious: Yes (Hospitalization)
  Sender: FDA-Public Use
  Company Number: SE-ABBOTT-09P-150-0558454-00

PATIENT
  Sex: Female
  Weight: 57 kg

DRUGS (7)
  1. HUMIRA [Suspect]
     Indication: CROHN'S DISEASE
     Route: 058
     Dates: start: 20080828, end: 20081127
  2. HUMIRA [Suspect]
     Route: 058
     Dates: start: 20081127, end: 20090107
  3. BEHEPAN [Concomitant]
     Indication: VITAMIN B COMPLEX DEFICIENCY
     Dates: start: 20080911
  4. PREDNISOLONE [Concomitant]
     Indication: STEROID THERAPY
     Dosage: ONCE DAILY, TAPERING
     Dates: start: 20080909, end: 20081127
  5. CALCICHEW-D3 [Concomitant]
     Indication: OSTEOPOROSIS PROPHYLAXIS
     Dates: start: 20071102, end: 20090218
  6. IDEOS [Concomitant]
     Indication: OSTEOPOROSIS PROPHYLAXIS
     Dates: start: 20071102, end: 20090218
  7. IMUREL [Concomitant]
     Indication: CROHN'S DISEASE
     Dates: start: 19990301, end: 20090219

REACTIONS (1)
  - CROHN'S DISEASE [None]
